FAERS Safety Report 9360328 (Version 2)
Quarter: 2013Q3

REPORT INFORMATION
  Report Type: Spontaneous
  Country: NL (occurrence: NL)
  Receive Date: 20130621
  Receipt Date: 20130719
  Transmission Date: 20140515
  Serious: No
  Sender: FDA-Public Use
  Company Number: NL-ASTRAZENECA-2013SE46561

PATIENT
  Age: 23062 Day
  Sex: Female
  Weight: 55 kg

DRUGS (2)
  1. FASLODEX [Suspect]
     Indication: NEOPLASM MALIGNANT
     Route: 030
  2. FASLODEX [Suspect]
     Indication: NEOPLASM MALIGNANT
     Route: 030
     Dates: start: 20130619

REACTIONS (3)
  - Heart rate decreased [Recovered/Resolved]
  - Syncope [Recovered/Resolved]
  - Dysgeusia [Recovered/Resolved]
